FAERS Safety Report 23282818 (Version 1)
Quarter: 2023Q4

REPORT INFORMATION
  Report Type: Spontaneous
  Country: US (occurrence: US)
  Receive Date: 20231211
  Receipt Date: 20231211
  Transmission Date: 20240110
  Serious: Yes (Other)
  Sender: FDA-Public Use
  Company Number: US-BAXTER-2023BAX037640

PATIENT
  Age: 60 Year
  Sex: Female

DRUGS (11)
  1. TRANSDERM SCOP [Suspect]
     Active Substance: SCOPOLAMINE
     Indication: Prophylaxis
     Dosage: TRANSDERMAL PATCH
     Route: 062
  2. TRANSDERM SCOP [Suspect]
     Active Substance: SCOPOLAMINE
     Dosage: REPLACED THE PATCH ON THE THIRD DAY, ON THE SIXTH DAY THE LAST DAY OF THE CRUISE, PATIENT REMOVED TH
     Route: 062
  3. HYDROCHLOROTHIAZIDE [Concomitant]
     Active Substance: HYDROCHLOROTHIAZIDE
     Dosage: UNK
     Route: 065
  4. PHENYLPROPANOLAMINE [Concomitant]
     Active Substance: PHENYLPROPANOLAMINE
     Indication: Antiallergic therapy
     Dosage: 40 MG
     Route: 065
  5. PHENYLPROPANOLAMINE [Concomitant]
     Active Substance: PHENYLPROPANOLAMINE
     Indication: Nasal congestion
  6. PHENYLEPHRINE [Concomitant]
     Active Substance: PHENYLEPHRINE HYDROCHLORIDE
     Indication: Antiallergic therapy
     Dosage: 10 MG
     Route: 065
  7. PHENYLEPHRINE [Concomitant]
     Active Substance: PHENYLEPHRINE HYDROCHLORIDE
     Indication: Nasal congestion
  8. PHENYLTOLOXAMINE [Concomitant]
     Active Substance: PHENYLTOLOXAMINE
     Indication: Antiallergic therapy
     Dosage: 15 MG
     Route: 065
  9. PHENYLTOLOXAMINE [Concomitant]
     Active Substance: PHENYLTOLOXAMINE
     Indication: Nasal congestion
  10. CHLORPHENIRAMINE [Concomitant]
     Active Substance: CHLORPHENIRAMINE
     Indication: Antiallergic therapy
     Dosage: 5 MG
     Route: 065
  11. CHLORPHENIRAMINE [Concomitant]
     Active Substance: CHLORPHENIRAMINE
     Indication: Nasal congestion

REACTIONS (10)
  - Psychotic disorder [Recovered/Resolved]
  - Hallucination [Recovered/Resolved]
  - Hallucination, tactile [Recovered/Resolved]
  - Agitation [Recovered/Resolved]
  - Restlessness [Recovered/Resolved]
  - Dry skin [Recovered/Resolved]
  - Dizziness [Recovered/Resolved]
  - Dry mouth [Recovered/Resolved]
  - Vision blurred [Recovered/Resolved]
  - Somnolence [Recovered/Resolved]
